FAERS Safety Report 14985218 (Version 1)
Quarter: 2018Q2

REPORT INFORMATION
  Report Type: Spontaneous
  Country: DE (occurrence: DE)
  Receive Date: 20180607
  Receipt Date: 20180607
  Transmission Date: 20180711
  Serious: Yes (Life-Threatening, Hospitalization)
  Sender: FDA-Public Use
  Company Number: DE-TEVA-2018-DE-902922

PATIENT
  Age: 21 Year
  Sex: Male

DRUGS (12)
  1. ESCITALOPRAM [Suspect]
     Active Substance: ESCITALOPRAM OXALATE
  2. IVABRADIN [Concomitant]
     Dosage: 15 MILLIGRAM DAILY;
  3. LORAZEPAM. [Concomitant]
     Active Substance: LORAZEPAM
     Dosage: 1 MILLIGRAM DAILY;
  4. L-THYROXIN [Concomitant]
     Active Substance: LEVOTHYROXINE SODIUM
  5. LINEZOLID. [Interacting]
     Active Substance: LINEZOLID
     Indication: PNEUMONIA STAPHYLOCOCCAL
     Dosage: 2 DOSAGE FORMS DAILY;
     Route: 042
     Dates: start: 20180315, end: 20180318
  6. LEVETIRACETAM. [Concomitant]
     Active Substance: LEVETIRACETAM
     Dosage: 2 DOSAGE FORMS DAILY;
     Route: 065
  7. SCOPOLAMIN [Concomitant]
     Active Substance: SCOPOLAMINE
  8. NALOXONE, TILIDINE [Concomitant]
  9. BACLOFEN. [Concomitant]
     Active Substance: BACLOFEN
  10. ESOMEPRAZOLE [Interacting]
     Active Substance: ESOMEPRAZOLE
     Route: 065
  11. COTRIMOXAZOL [Concomitant]
     Active Substance: SULFAMETHOXAZOLE\TRIMETHOPRIM
     Dosage: 2 DOSAGE FORMS DAILY;
     Route: 042
     Dates: start: 20180315, end: 20180319
  12. PREDNISOLON [Concomitant]
     Active Substance: PREDNISOLONE

REACTIONS (4)
  - Status epilepticus [Not Recovered/Not Resolved]
  - Body temperature increased [Not Recovered/Not Resolved]
  - Serotonin syndrome [Not Recovered/Not Resolved]
  - Drug interaction [Not Recovered/Not Resolved]

NARRATIVE: CASE EVENT DATE: 20180317
